FAERS Safety Report 8811063 (Version 2)
Quarter: 2012Q4

REPORT INFORMATION
  Report Type: Report from Study
  Country: BE (occurrence: BE)
  Receive Date: 20120927
  Receipt Date: 20121008
  Transmission Date: 20130627
  Serious: Yes (Hospitalization)
  Sender: FDA-Public Use
  Company Number: PHHO2012BE013652

PATIENT
  Sex: Female
  Weight: 70 kg

DRUGS (2)
  1. CGS 20267 [Suspect]
     Indication: BREAST CANCER
     Dosage: 2.5 mg, per day
     Dates: start: 20110629
  2. NOLVADEX [Suspect]
     Dosage: 20 mg/day
     Dates: start: 20100628

REACTIONS (1)
  - Uterine polyp [Recovered/Resolved]
